FAERS Safety Report 7965070-2 (Version None)
Quarter: 2011Q4

REPORT INFORMATION
  Report Type: 
  Country: None (occurrence: None)
  Receive Date: 20111208
  Receipt Date: 20111202
  Transmission Date: 20120403
  Serious: Yes (Hospitalization)
  Sender: FDA-Public Use
  Company Number: US-BAYER-2011-116648

PATIENT
  Age: 82 Year
  Sex: Female

DRUGS (4)
  1. NEXAVAR [Suspect]
     Indication: HEPATIC NEOPLASM MALIGNANT
     Dosage: 200 MG, BID
     Dates: start: 20111122
  2. METFORMIN HCL [Concomitant]
  3. ALLOPURINOL [Concomitant]
  4. LASIX [Concomitant]

REACTIONS (1)
  - COMA [None]
